FAERS Safety Report 7075082-1 (Version None)
Quarter: 2010Q4

REPORT INFORMATION
  Report Type: 
  Country: None (occurrence: None)
  Receive Date: 20101029
  Receipt Date: 20100326
  Transmission Date: 20110411
  Serious: No
  Sender: FDA-Public Use
  Company Number: US-WYE-H13972810

PATIENT
  Age: 70 Year
  Sex: Male
  Weight: 68.1 kg

DRUGS (3)
  1. ALAVERT D-12 [Suspect]
     Indication: HYPERSENSITIVITY
     Route: 048
     Dates: start: 20100227, end: 20100228
  2. ACETYLSALICYLIC ACID SRT [Concomitant]
  3. TAGAMET [Concomitant]

REACTIONS (3)
  - DRUG EFFECT DECREASED [None]
  - DRY MOUTH [None]
  - INSOMNIA [None]
